FAERS Safety Report 14847843 (Version 2)
Quarter: 2019Q1

REPORT INFORMATION
  Report Type: Spontaneous
  Country: US (occurrence: US)
  Receive Date: 20180504
  Receipt Date: 20190309
  Transmission Date: 20190417
  Serious: Yes (Hospitalization, Other)
  Sender: FDA-Public Use
  Company Number: PHEH2018US016883

PATIENT
  Sex: Male

DRUGS (2)
  1. TASIGNA [Suspect]
     Active Substance: NILOTINIB
     Dosage: 1 DF, BID
     Route: 048
     Dates: start: 201510, end: 20171224
  2. TASIGNA [Suspect]
     Active Substance: NILOTINIB
     Indication: CHRONIC MYELOID LEUKAEMIA
     Dosage: 1 DF, BID
     Route: 048
     Dates: start: 20130101, end: 20150406

REACTIONS (56)
  - Arrhythmia [Unknown]
  - Rectal haemorrhage [Unknown]
  - Glucose tolerance impaired [Unknown]
  - Umbilical hernia [Unknown]
  - Spinal column stenosis [Unknown]
  - Chronic obstructive pulmonary disease [Unknown]
  - Cranial nerve neoplasm benign [Unknown]
  - Arteriosclerosis [Unknown]
  - Asthenia [Unknown]
  - Gastrooesophageal reflux disease [Unknown]
  - Diabetes mellitus [Unknown]
  - Hypokalaemia [Unknown]
  - Hyperlipidaemia [Unknown]
  - Haemorrhoids [Unknown]
  - Mitral valve incompetence [Unknown]
  - Nephrolithiasis [Unknown]
  - Angiodysplasia [Unknown]
  - Cognitive disorder [Unknown]
  - Folliculitis [Unknown]
  - Arteriosclerosis coronary artery [Unknown]
  - Deafness [Unknown]
  - Pneumonia pneumococcal [Unknown]
  - Essential hypertension [Unknown]
  - Microcytic anaemia [Unknown]
  - Thyroid mass [Unknown]
  - Fatigue [Unknown]
  - Anxiety [Unknown]
  - Dyspnoea [Unknown]
  - Pleural effusion [Unknown]
  - Major depression [Unknown]
  - Neuropathy peripheral [Unknown]
  - Hypoalbuminaemia [Unknown]
  - Gastrointestinal angiodysplasia [Unknown]
  - Vitamin B12 deficiency [Unknown]
  - Tinnitus [Unknown]
  - Blood cholesterol increased [Unknown]
  - Arthralgia [Unknown]
  - Headache [Unknown]
  - Peripheral artery stenosis [Unknown]
  - Otitis externa [Unknown]
  - Chest pain [Unknown]
  - Tremor [Unknown]
  - Acute left ventricular failure [Unknown]
  - Peripheral arterial occlusive disease [Unknown]
  - Vascular insufficiency [Unknown]
  - Renal mass [Unknown]
  - Vitamin B complex deficiency [Unknown]
  - Spinal claudication [Unknown]
  - Coronary artery disease [Unknown]
  - Myalgia [Unknown]
  - Extrasystoles [Unknown]
  - Tricuspid valve incompetence [Unknown]
  - Peripheral vascular disorder [Unknown]
  - Rash [Unknown]
  - Palpitations [Unknown]
  - Hypertriglyceridaemia [Unknown]
